FAERS Safety Report 9464729 (Version 3)
Quarter: 2013Q3

REPORT INFORMATION
  Report Type: Spontaneous
  Country: US (occurrence: US)
  Receive Date: 20130819
  Receipt Date: 20130920
  Transmission Date: 20140515
  Serious: Yes (Death)
  Sender: FDA-Public Use
  Company Number: US-GLAXOSMITHKLINE-A1037480A

PATIENT
  Age: 70 Year
  Sex: Male

DRUGS (17)
  1. ARIXTRA [Suspect]
     Indication: DEEP VEIN THROMBOSIS
     Dosage: 7.5MG PER DAY
     Route: 058
  2. ALBUTEROL [Concomitant]
  3. ALPRAZOLAM [Concomitant]
  4. ASPIRIN [Concomitant]
  5. DIGOXIN [Concomitant]
  6. DILTIAZEM [Concomitant]
  7. FLUTICASONE INHALER [Concomitant]
  8. HYDROCODONE [Concomitant]
  9. LEVALBUTEROL NEBULIZER [Concomitant]
  10. ATIVAN [Concomitant]
  11. MEGESTROL [Concomitant]
  12. PRILOSEC [Concomitant]
  13. ZOFRAN [Concomitant]
  14. PREDNISONE [Concomitant]
  15. COMPAZINE [Concomitant]
  16. SIMVASTATIN [Concomitant]
  17. SPIRIVA [Concomitant]

REACTIONS (1)
  - Neoplasm malignant [Fatal]
